FAERS Safety Report 8992492 (Version 2)
Quarter: 2013Q1

REPORT INFORMATION
  Report Type: Spontaneous
  Country: IE (occurrence: IE)
  Receive Date: 20121231
  Receipt Date: 20130118
  Transmission Date: 20140127
  Serious: Yes (Hospitalization)
  Sender: FDA-Public Use
  Company Number: IE-MILLENNIUM PHARMACEUTICALS, INC.-2012-09169

PATIENT
  Sex: 0

DRUGS (11)
  1. VELCADE [Suspect]
     Indication: PLASMA CELL MYELOMA
     Dosage: 1 MG/M2, CYCLIC
     Route: 065
     Dates: start: 20101123
  2. REVLIMID [Concomitant]
  3. ALOPURINOL [Concomitant]
  4. FLUCONAZOLE [Concomitant]
  5. SPIRIVA [Concomitant]
  6. CALCICHEW-D3 FORTE [Concomitant]
  7. ELTROXIN [Concomitant]
  8. PANTOPRAZOLE [Concomitant]
  9. PANADOL                            /00020001/ [Concomitant]
  10. DEXAMETHASONE [Concomitant]
  11. VALACICLOVIR [Concomitant]

REACTIONS (3)
  - Gastrointestinal disorder [Recovered/Resolved]
  - Blood calcium decreased [Unknown]
  - Muscle spasms [Unknown]
